FAERS Safety Report 4360939-2 (Version None)
Quarter: 2004Q2

REPORT INFORMATION
  Report Type: 
  Country: None (occurrence: None)
  Receive Date: 20040517
  Receipt Date: 20040505
  Transmission Date: 20050107
  Serious: Yes (Other)
  Sender: FDA-Public Use
  Company Number: 2004025619

PATIENT
  Age: 55 Year
  Sex: Male

DRUGS (4)
  1. TAHOR (ATORVASTATIN) [Suspect]
     Indication: HYPERCHOLESTEROLAEMIA
     Dosage: 40 MG (DAILY)
     Dates: start: 20000101, end: 20040401
  2. DILTIAZEM [Concomitant]
  3. RABEPRAZOLE SODIUM [Concomitant]
  4. RANITIDINE [Concomitant]

REACTIONS (4)
  - TENDON DISORDER [None]
  - TENDON RUPTURE [None]
  - TENDONITIS [None]
  - TRIGGER FINGER [None]
